FAERS Safety Report 16827363 (Version 1)
Quarter: 2019Q3

REPORT INFORMATION
  Report Type: Report from Study
  Country: BG (occurrence: BG)
  Receive Date: 20190919
  Receipt Date: 20190919
  Transmission Date: 20191005
  Serious: Yes (Hospitalization)
  Sender: FDA-Public Use
  Company Number: BG-ASTRAZENECA-2019SF18604

PATIENT
  Age: 67 Year
  Sex: Female

DRUGS (6)
  1. FASENRA [Suspect]
     Active Substance: BENRALIZUMAB
     Indication: ASTHMA
     Route: 058
     Dates: start: 20190311
  2. BLOKBIS [Concomitant]
  3. ATORIS [Concomitant]
     Active Substance: ATORVASTATIN CALCIUM
  4. PRESTARIUM [Concomitant]
     Active Substance: PERINDOPRIL
  5. ASPIRIN. [Concomitant]
     Active Substance: ASPIRIN
  6. NASONEX [Concomitant]
     Active Substance: MOMETASONE FUROATE

REACTIONS (2)
  - Drug ineffective [Unknown]
  - Asthma [Unknown]
